FAERS Safety Report 23153565 (Version 1)
Quarter: 2023Q4

REPORT INFORMATION
  Report Type: Report from Study
  Country: US (occurrence: US)
  Receive Date: 20231107
  Receipt Date: 20231107
  Transmission Date: 20240109
  Serious: Yes (Other)
  Sender: FDA-Public Use
  Company Number: US-002147023-NVSC2023US235432

PATIENT
  Sex: Male
  Weight: 95.25 kg

DRUGS (1)
  1. COSENTYX [Suspect]
     Active Substance: SECUKINUMAB
     Indication: Psoriasis
     Route: 065

REACTIONS (6)
  - Basal cell carcinoma [Unknown]
  - Skin cancer [Unknown]
  - Psoriasis [Unknown]
  - Condition aggravated [Unknown]
  - Alopecia [Unknown]
  - Drug ineffective [Unknown]
